FAERS Safety Report 6253783-2 (Version None)
Quarter: 2009Q3

REPORT INFORMATION
  Report Type: 
  Country: None (occurrence: None)
  Receive Date: 20090702
  Receipt Date: 20090625
  Transmission Date: 20100115
  Serious: Yes (Other)
  Sender: FDA-Public Use
  Company Number: US-JNJCH-2009017543

PATIENT
  Age: 74 Year
  Sex: Female
  Weight: 66.2 kg

DRUGS (3)
  1. BENGAY ULTRA STRENGTH [Suspect]
     Indication: BACK PAIN
     Dosage: TEXT:TWO TO THREE SQUIRTS THREE TIMES A DAY
     Route: 061
  2. COZAAR [Concomitant]
     Indication: DRUG USE FOR UNKNOWN INDICATION
     Dosage: TEXT:UNSPECIFIED
     Route: 065
  3. LEXAPRO [Concomitant]
     Indication: DRUG USE FOR UNKNOWN INDICATION
     Dosage: TEXT:UNSPECIFIED
     Route: 065

REACTIONS (1)
  - CARDIAC DISORDER [None]
